FAERS Safety Report 5166627-7 (Version None)
Quarter: 2006Q4

REPORT INFORMATION
  Report Type: 
  Country: None (occurrence: None)
  Receive Date: 20061129
  Receipt Date: 20061122
  Transmission Date: 20070319
  Serious: Yes (Hospitalization)
  Sender: FDA-Public Use
  Company Number: 2006BI012982

PATIENT
  Age: 57 Year
  Sex: Male
  Weight: 80 kg

DRUGS (1)
  1. AVONEX [Suspect]
     Indication: MULTIPLE SCLEROSIS
     Dosage: 30 UG; QW; IM
     Route: 030
     Dates: start: 20040401

REACTIONS (2)
  - INFLUENZA LIKE ILLNESS [None]
  - LYMPHOMA [None]
